FAERS Safety Report 7262273-X (Version None)
Quarter: 2011Q1

REPORT INFORMATION
  Report Type: 
  Country: None (occurrence: None)
  Receive Date: 20110130
  Receipt Date: 20101115
  Transmission Date: 20110831
  Serious: No
  Sender: FDA-Public Use
  Company Number: US-ABBOTT-10P-163-0685578-00

PATIENT
  Age: 38 Year
  Sex: Female

DRUGS (14)
  1. HUMIRA [Suspect]
     Indication: PSORIATIC ARTHROPATHY
     Dates: start: 20080801, end: 20081101
  2. FOLIC ACID [Concomitant]
     Indication: VITAMIN SUPPLEMENTATION
  3. AMRIX [Concomitant]
     Indication: FIBROMYALGIA
  4. CYMBALTA [Concomitant]
     Indication: FIBROMYALGIA
  5. CRESTOR [Concomitant]
     Indication: BLOOD CHOLESTEROL INCREASED
  6. XANAX [Concomitant]
     Indication: INSOMNIA
  7. OXYCONTIN [Concomitant]
     Indication: PAIN MANAGEMENT
  8. HUMIRA [Suspect]
     Dates: start: 20101110
  9. INFLUENZA VACCINE [Suspect]
     Indication: PRODUCT USED FOR UNKNOWN INDICATION
     Dates: start: 20101110, end: 20101110
  10. CENESTIN [Concomitant]
     Indication: HORMONE REPLACEMENT THERAPY
  11. OXYCODONE [Concomitant]
     Indication: PAIN
  12. BENICAR [Concomitant]
     Indication: BLOOD PRESSURE INCREASED
  13. HUMIRA [Suspect]
     Dates: start: 20101101
  14. LEVOTHYROXINE SODIUM [Concomitant]
     Indication: HYPOTHYROIDISM

REACTIONS (2)
  - INFLUENZA LIKE ILLNESS [None]
  - UPPER RESPIRATORY TRACT CONGESTION [None]
